FAERS Safety Report 7506334-6 (Version None)
Quarter: 2011Q2

REPORT INFORMATION
  Report Type: 
  Country: None (occurrence: None)
  Receive Date: 20110526
  Receipt Date: 20100812
  Transmission Date: 20111010
  Serious: No
  Sender: FDA-Public Use
  Company Number: US-ABBOTT-10P-163-0664077-00

PATIENT
  Sex: Female
  Weight: 75.364 kg

DRUGS (1)
  1. ZEMPLAR [Suspect]
     Indication: RENAL FAILURE
     Route: 048
     Dates: start: 20100401, end: 20100501

REACTIONS (2)
  - HYPOTENSION [None]
  - DIZZINESS [None]
